FAERS Safety Report 8606395-7 (Version None)
Quarter: 2012Q3

REPORT INFORMATION
  Report Type: 
  Country: None (occurrence: None)
  Receive Date: 20120820
  Receipt Date: 20120809
  Transmission Date: 20120928
  Serious: Yes (Other)
  Sender: FDA-Public Use
  Company Number: BR-ROCHE-CID000000002120234

PATIENT
  Sex: Female

DRUGS (4)
  1. XOLAIR [Suspect]
     Indication: ASTHMA
     Dosage: 2 PACKAGES
     Route: 058
  2. SYMBICORT [Concomitant]
     Indication: ASTHMA
     Dosage: 12/400 UG
  3. DUOVENT [Concomitant]
     Indication: ASTHMA
  4. PREDNISONE [Concomitant]
     Indication: ASTHMA

REACTIONS (7)
  - DIZZINESS [None]
  - HYPERHIDROSIS [None]
  - PYREXIA [None]
  - FATIGUE [None]
  - BLOOD PRESSURE DECREASED [None]
  - PALLOR [None]
  - SOMNOLENCE [None]
